FAERS Safety Report 8330487-3 (Version None)
Quarter: 2012Q2

REPORT INFORMATION
  Report Type: 
  Country: None (occurrence: None)
  Receive Date: 20120502
  Receipt Date: 20120403
  Transmission Date: 20120825
  Serious: No
  Sender: FDA-Public Use
  Company Number: US-AMGEN-USASP2012021202

PATIENT
  Age: 56 Year
  Sex: Female

DRUGS (1)
  1. ENBREL [Suspect]
     Indication: SJOGREN'S SYNDROME
     Dosage: 50 MG, QWK
     Dates: start: 20110110, end: 20110110

REACTIONS (3)
  - INJECTION SITE PAIN [None]
  - NECK PAIN [None]
  - INJECTION SITE ERYTHEMA [None]
